FAERS Safety Report 10509599 (Version 4)
Quarter: 2014Q4

REPORT INFORMATION
  Report Type: Spontaneous
  Country: US (occurrence: US)
  Receive Date: 20141010
  Receipt Date: 20141208
  Transmission Date: 20150528
  Serious: No
  Sender: FDA-Public Use
  Company Number: US-AMGEN-USASP2014065892

PATIENT
  Age: 70 Year
  Sex: Female
  Weight: 62.59 kg

DRUGS (4)
  1. ENBREL [Suspect]
     Active Substance: ETANERCEPT
     Route: 065
  2. ENBREL [Suspect]
     Active Substance: ETANERCEPT
     Dosage: UNK
     Route: 065
  3. ENBREL [Suspect]
     Active Substance: ETANERCEPT
     Indication: RHEUMATOID ARTHRITIS
     Dosage: 50 MG, QWK
     Route: 058
     Dates: start: 20140820
  4. PREDNISONE. [Concomitant]
     Active Substance: PREDNISONE
     Dosage: 10 MG, UNK
     Route: 048

REACTIONS (9)
  - Injection site erythema [Not Recovered/Not Resolved]
  - Mass [Recovered/Resolved]
  - Arthritis [Not Recovered/Not Resolved]
  - Arthralgia [Not Recovered/Not Resolved]
  - Walking aid user [Recovered/Resolved]
  - Injection site warmth [Recovered/Resolved]
  - Contusion [Recovered/Resolved]
  - Memory impairment [Not Recovered/Not Resolved]
  - Finger deformity [Recovered/Resolved]

NARRATIVE: CASE EVENT DATE: 2014
